FAERS Safety Report 6911437-0 (Version None)
Quarter: 2010Q3

REPORT INFORMATION
  Report Type: 
  Country: None (occurrence: None)
  Receive Date: 20100806
  Receipt Date: 20100803
  Transmission Date: 20110219
  Serious: Yes (Other)
  Sender: FDA-Public Use
  Company Number: GXBR2010US01381

PATIENT
  Sex: Male
  Weight: 65.306 kg

DRUGS (10)
  1. FLUTAMIDE CAPSULES USP (NGX) [Suspect]
     Indication: PROSTATE CANCER
     Dosage: 250 MG, TID
     Route: 048
     Dates: start: 20100408
  2. RAMIPRIL [Concomitant]
     Dosage: 5 MG, QD
  3. ASPIRIN [Concomitant]
     Dosage: 325 MG, QD
  4. ADVICOR [Concomitant]
     Indication: BLOOD CHOLESTEROL INCREASED
     Dosage: 5/20MG, 2QHS
  5. CENTRUM SILVER [Concomitant]
     Dosage: UNK
  6. CITRACAL + D [Concomitant]
     Dosage: UNK
  7. OMEPRAZOLE [Concomitant]
     Dosage: 20 MG, PRN
  8. NATEGLINIDE [Concomitant]
     Indication: TYPE 2 DIABETES MELLITUS
     Dosage: 120 MG BEFORE EACH MEAL
  9. LUPRON [Concomitant]
     Indication: PROSTATE CANCER
     Dosage: UNK
     Dates: start: 20100414
  10. RADIATION THERAPY [Concomitant]
     Indication: PROSTATE CANCER
     Dosage: UNK

REACTIONS (3)
  - DYSPHAGIA [None]
  - INCREASED UPPER AIRWAY SECRETION [None]
  - MYASTHENIA GRAVIS [None]
